FAERS Safety Report 8757608 (Version 1)
Quarter: 2012Q4

REPORT INFORMATION
  Report Type: 
  Country: US (occurrence: US)
  Receive Date: 20120828
  Receipt Date: 20120828
  Transmission Date: 20130627
  Serious: Yes (Hospitalization, Other)
  Sender: FDA-Public Use
  Company Number: US-009507513-1208USA007180

PATIENT

DRUGS (4)
  1. IMPLANON [Suspect]
     Indication: CONTRACEPTION
     Dosage: UNK
     Dates: end: 201201
  2. VITAMINS (UNSPECIFIED) [Concomitant]
     Dosage: UNK, prnn
  3. ADVIL [Concomitant]
     Dosage: UNK, prn
  4. ACETAMINOPHEN [Concomitant]
     Dosage: UNK, prnn

REACTIONS (1)
  - Ovarian cancer [Not Recovered/Not Resolved]
